FAERS Safety Report 25904168 (Version 2)
Quarter: 2025Q4

REPORT INFORMATION
  Report Type: Spontaneous
  Country: RU (occurrence: RU)
  Receive Date: 20251010
  Receipt Date: 20251112
  Transmission Date: 20260117
  Serious: Yes (Death, Hospitalization, Other)
  Sender: ABBVIE
  Company Number: RU-ABBVIE-6497416

PATIENT
  Age: 61 Year
  Sex: Female
  Weight: 72 kg

DRUGS (1)
  1. RINVOQ [Suspect]
     Active Substance: UPADACITINIB
     Indication: Crohn^s disease
     Dosage: DURATION : 3 MONTHS
     Route: 048

REACTIONS (4)
  - Acute kidney injury [Fatal]
  - Inflammatory bowel disease [Unknown]
  - Drug ineffective [Unknown]
  - Dyspepsia [Unknown]
